FAERS Safety Report 6628819-7 (Version None)
Quarter: 2010Q1

REPORT INFORMATION
  Report Type: 
  Country: None (occurrence: None)
  Receive Date: 20100311
  Receipt Date: 20090611
  Transmission Date: 20100710
  Serious: Yes (Hospitalization)
  Sender: FDA-Public Use
  Company Number: BR-MERCK-0906USA04183

PATIENT
  Age: 34 Year
  Sex: Female

DRUGS (1)
  1. ARAMINE [Suspect]
     Dosage: 19MG/ML
     Route: 042

REACTIONS (4)
  - ACCIDENTAL OVERDOSE [None]
  - HEART INJURY [None]
  - HYPERTENSION [None]
  - LEFT VENTRICULAR DYSFUNCTION [None]
